FAERS Safety Report 17417061 (Version 2)
Quarter: 2020Q1

REPORT INFORMATION
  Report Type: Report from Study
  Country: CH (occurrence: CH)
  Receive Date: 20200214
  Receipt Date: 20200309
  Transmission Date: 20200409
  Serious: Yes (Death)
  Sender: FDA-Public Use
  Company Number: CH-ROCHE-2424264

PATIENT
  Sex: Female

DRUGS (2)
  1. AVASTIN [Suspect]
     Active Substance: BEVACIZUMAB
     Indication: BRAIN OEDEMA
     Route: 042
     Dates: start: 20190927, end: 20191018
  2. AVASTIN [Suspect]
     Active Substance: BEVACIZUMAB
     Indication: RADIATION NECROSIS

REACTIONS (3)
  - No adverse event [Unknown]
  - Intentional product use issue [Unknown]
  - Off label use [Unknown]
